FAERS Safety Report 13707906 (Version 2)
Quarter: 2017Q4

REPORT INFORMATION
  Report Type: Spontaneous
  Country: FR (occurrence: FR)
  Receive Date: 20170630
  Receipt Date: 20171103
  Transmission Date: 20180320
  Serious: Yes (Other)
  Sender: FDA-Public Use
  Company Number: FR-BAYER-2017-125252

PATIENT
  Age: 42 Year
  Sex: Female

DRUGS (1)
  1. MIRENA [Suspect]
     Active Substance: LEVONORGESTREL
     Indication: CONTRACEPTION
     Dosage: 20 MCG/24HR, CONT
     Route: 015
     Dates: start: 20151126, end: 20170608

REACTIONS (11)
  - Migraine [Not Recovered/Not Resolved]
  - Panic attack [Recovering/Resolving]
  - Pain in extremity [Recovered/Resolved]
  - Irritability [Recovering/Resolving]
  - Alopecia [Recovered/Resolved]
  - Back pain [Recovered/Resolved]
  - Amnesia [Not Recovered/Not Resolved]
  - Vertigo [Recovered/Resolved]
  - Fatigue [Recovering/Resolving]
  - Skin disorder [Recovered/Resolved]
  - Weight increased [Not Recovered/Not Resolved]

NARRATIVE: CASE EVENT DATE: 20160701
